FAERS Safety Report 8609877-7 (Version None)
Quarter: 2012Q3

REPORT INFORMATION
  Report Type: 
  Country: None (occurrence: None)
  Receive Date: 20120821
  Receipt Date: 20120820
  Transmission Date: 20120928
  Serious: Yes (Life-Threatening, Hospitalization)
  Sender: FDA-Public Use
  Company Number: CN-ROCHE-1100704

PATIENT
  Age: 66 Year
  Sex: Female

DRUGS (1)
  1. MABTHERA [Suspect]
     Indication: DIFFUSE LARGE B-CELL LYMPHOMA
     Route: 041
     Dates: start: 20120808

REACTIONS (6)
  - ALTERED STATE OF CONSCIOUSNESS [None]
  - OLIGURIA [None]
  - DYSPNOEA [None]
  - HYPERPYREXIA [None]
  - HYPERTENSION [None]
  - TACHYCARDIA [None]
